FAERS Safety Report 18207528 (Version 1)
Quarter: 2020Q3

REPORT INFORMATION
  Report Type: Spontaneous
  Country: US (occurrence: US)
  Receive Date: 20200828
  Receipt Date: 20200828
  Transmission Date: 20201103
  Serious: Yes (Other)
  Sender: FDA-Public Use
  Company Number: US-ASTRAZENECA-2020SF07768

PATIENT
  Sex: Male

DRUGS (4)
  1. LYNPARZA [Suspect]
     Active Substance: OLAPARIB
     Indication: HORMONE-REFRACTORY PROSTATE CANCER
     Route: 048
     Dates: start: 20200808
  2. LYNPARZA [Suspect]
     Active Substance: OLAPARIB
     Indication: HORMONE-REFRACTORY PROSTATE CANCER
     Route: 048
     Dates: start: 202008
  3. WARFARIN [Concomitant]
     Active Substance: WARFARIN
     Dosage: UNKNOWN
     Route: 065
  4. LYNPARZA [Suspect]
     Active Substance: OLAPARIB
     Indication: HORMONE-REFRACTORY PROSTATE CANCER
     Route: 048
     Dates: start: 20200819

REACTIONS (4)
  - Malignant neoplasm progression [Unknown]
  - Pyrexia [Unknown]
  - Subdural haematoma [Unknown]
  - Therapy non-responder [Unknown]

NARRATIVE: CASE EVENT DATE: 20200817
